FAERS Safety Report 15953286 (Version 1)
Quarter: 2019Q1

REPORT INFORMATION
  Report Type: Spontaneous
  Country: FR (occurrence: FR)
  Receive Date: 20190212
  Receipt Date: 20190212
  Transmission Date: 20190417
  Serious: Yes (Hospitalization)
  Sender: FDA-Public Use
  Company Number: FR-TAKEDA-2018TEU007805

PATIENT
  Age: 76 Year
  Sex: Female
  Weight: 60 kg

DRUGS (22)
  1. EPHEDRINE HYDROCHLORIDE [Suspect]
     Active Substance: EPHEDRINE HYDROCHLORIDE
     Indication: GENERAL ANAESTHESIA
     Dosage: 6 MG, QD
     Route: 042
     Dates: start: 20181102, end: 20181102
  2. KETOPROFENE MEDAC [Suspect]
     Active Substance: KETOPROFEN
     Indication: ANTIINFLAMMATORY THERAPY
     Dosage: 200 MG, QD
     Route: 042
     Dates: start: 20181103, end: 20181103
  3. CISATRACURIUM MYLAN [Suspect]
     Active Substance: CISATRACURIUM
     Indication: GENERAL ANAESTHESIA
     Dosage: 14 MG, QD
     Route: 042
     Dates: start: 20181102, end: 20181102
  4. POLYIONIQUE FORMULE 1A G5 [Suspect]
     Active Substance: DEXTROSE\POTASSIUM CHLORIDE\SODIUM CHLORIDE
     Indication: FLUID REPLACEMENT
     Dosage: UNK UNK, QD
     Route: 042
     Dates: start: 20181103, end: 20181103
  5. MIDAZOLAM [Suspect]
     Active Substance: MIDAZOLAM HYDROCHLORIDE
     Indication: GENERAL ANAESTHESIA
     Dosage: 1 MG, QD
     Route: 042
     Dates: start: 20181102, end: 20181102
  6. LOVENOX [Suspect]
     Active Substance: ENOXAPARIN SODIUM
     Indication: ANTICOAGULANT THERAPY
     Dosage: 4000 IU, QD
     Route: 058
     Dates: start: 20181102, end: 20181111
  7. PARACETAMOL B. BRAUN [Suspect]
     Active Substance: ACETAMINOPHEN
     Indication: ANALGESIC INTERVENTION SUPPORTIVE THERAPY
     Dosage: 4 G, QD
     Route: 042
     Dates: start: 20181102, end: 20181103
  8. PROPOFOL. [Suspect]
     Active Substance: PROPOFOL
     Indication: GENERAL ANAESTHESIA
     Dosage: 320 MG, QD
     Route: 042
     Dates: start: 20181102, end: 20181102
  9. EXACYL [Suspect]
     Active Substance: TRANEXAMIC ACID
     Indication: HAEMORRHAGE PROPHYLAXIS
     Dosage: 2 G, QD
     Route: 048
     Dates: start: 20181103, end: 20181103
  10. CHIROCAINE [Suspect]
     Active Substance: LEVOBUPIVACAINE HYDROCHLORIDE
     Indication: GENERAL ANAESTHESIA
     Dosage: 50 MG, QD
     Route: 042
     Dates: start: 20181102, end: 20181102
  11. SUFENTANIL                         /00723502/ [Suspect]
     Active Substance: SUFENTANIL CITRATE
     Indication: GENERAL ANAESTHESIA
     Dosage: 50 UG, UNK
     Route: 042
     Dates: start: 20181102, end: 20181102
  12. LANSOPRAZOLE. [Suspect]
     Active Substance: LANSOPRAZOLE
     Indication: PROPHYLAXIS AGAINST GASTROINTESTINAL ULCER
     Dosage: 30 MG, QD
     Route: 048
     Dates: start: 20181102, end: 20181114
  13. MIVACRON [Suspect]
     Active Substance: MIVACURIUM CHLORIDE
     Indication: GENERAL ANAESTHESIA
     Dosage: 14 MG, QD
     Route: 042
     Dates: start: 20181102, end: 20181102
  14. DEXAMETHASONE. [Suspect]
     Active Substance: DEXAMETHASONE
     Indication: GENERAL ANAESTHESIA
     Dosage: 8 MG, QD
     Route: 042
     Dates: start: 20181102, end: 20181102
  15. KETAMINE RENAUDIN [Suspect]
     Active Substance: KETAMINE
     Indication: GENERAL ANAESTHESIA
     Dosage: 20 MG, QD
     Route: 042
     Dates: start: 20181102, end: 20181102
  16. NEFOPAM [Suspect]
     Active Substance: NEFOPAM
     Indication: ANALGESIC INTERVENTION SUPPORTIVE THERAPY
     Dosage: 80 MG, QD
     Route: 048
     Dates: start: 20181103, end: 20181104
  17. TRANEXAMIC ACID. [Suspect]
     Active Substance: TRANEXAMIC ACID
     Indication: HAEMORRHAGE PROPHYLAXIS
     Dosage: 2 GRAM, QD
     Dates: start: 20181103, end: 20181103
  18. VENOFER [Suspect]
     Active Substance: IRON SUCROSE
     Indication: ANAEMIA PROPHYLAXIS
     Dosage: 300 MG, QD
     Route: 040
     Dates: start: 20181103, end: 20181103
  19. PARACETAMOL [Suspect]
     Active Substance: ACETAMINOPHEN
     Indication: ANALGESIC INTERVENTION SUPPORTIVE THERAPY
     Dosage: 4 G, QD
     Route: 042
     Dates: start: 20181102
  20. CEFAZOLINE MYLAN [Suspect]
     Active Substance: CEFAZOLIN SODIUM
     Indication: ANTIBIOTIC PROPHYLAXIS
     Dosage: 4 G, QD
     Route: 042
     Dates: start: 20181102, end: 20181102
  21. DROPERIDOL AGUETTANT [Suspect]
     Active Substance: DROPERIDOL
     Indication: GENERAL ANAESTHESIA
     Dosage: 0.6 MG, QD
     Route: 042
     Dates: start: 20181102, end: 20181102
  22. MOVICOL [Suspect]
     Active Substance: POLYETHYLENE GLYCOL 3350\POTASSIUM CHLORIDE\SODIUM BICARBONATE\SODIUM CHLORIDE
     Indication: LAXATIVE SUPPORTIVE CARE
     Dosage: UNK UNK, QD
     Route: 048
     Dates: start: 20181111

REACTIONS (1)
  - Acute generalised exanthematous pustulosis [Recovered/Resolved]

NARRATIVE: CASE EVENT DATE: 20181114
